FAERS Safety Report 10094440 (Version 1)
Quarter: 2014Q2

REPORT INFORMATION
  Report Type: Spontaneous
  Country: US (occurrence: US)
  Receive Date: 20140422
  Receipt Date: 20140422
  Transmission Date: 20141212
  Serious: No
  Sender: FDA-Public Use
  Company Number: US-MYLANLABS-2013S1008163

PATIENT
  Age: 62 Year
  Sex: Female

DRUGS (2)
  1. CLARITHROMYCIN TABLETS [Suspect]
     Indication: INFECTION
     Route: 048
     Dates: start: 20130313, end: 20130323
  2. BECLOMETHASONE DIPROPIONATE [Concomitant]
     Dosage: QNASE NASAL SPRAY, 2 SPRAYS, DAILY
     Route: 045

REACTIONS (1)
  - Dysgeusia [Not Recovered/Not Resolved]
